FAERS Safety Report 11289878 (Version 1)
Quarter: 2015Q3

REPORT INFORMATION
  Report Type: Spontaneous
  Country: DE (occurrence: DE)
  Receive Date: 20150721
  Receipt Date: 20150721
  Transmission Date: 20151125
  Serious: Yes (Hospitalization)
  Sender: FDA-Public Use
  Company Number: DE-BAYER-2015-383569

PATIENT
  Sex: Male

DRUGS (1)
  1. ASPIRIN PROTECT [Suspect]
     Active Substance: ASPIRIN

REACTIONS (1)
  - Gastric disorder [Recovering/Resolving]
